FAERS Safety Report 14305598 (Version 2)
Quarter: 2018Q1

REPORT INFORMATION
  Report Type: Spontaneous
  Country: JP (occurrence: JP)
  Receive Date: 20171219
  Receipt Date: 20180104
  Transmission Date: 20180509
  Serious: Yes (Life-Threatening, Hospitalization)
  Sender: FDA-Public Use
  Company Number: JP-TEVA-2017-JP-833295

PATIENT
  Age: 30 Year
  Sex: Female

DRUGS (6)
  1. CLOTIAZEPAM [Concomitant]
     Active Substance: CLOTIAZEPAM
     Indication: ADJUSTMENT DISORDER
     Route: 065
  2. ZOLPIDEM [Concomitant]
     Active Substance: ZOLPIDEM\ZOLPIDEM TARTRATE
     Indication: ADJUSTMENT DISORDER
     Route: 065
  3. DIAZEPAM. [Concomitant]
     Active Substance: DIAZEPAM
     Indication: ADJUSTMENT DISORDER
     Route: 065
  4. SALICYLIC ACID. [Concomitant]
     Active Substance: SALICYLIC ACID
     Indication: ADJUSTMENT DISORDER
     Route: 065
  5. PROPOFOL. [Suspect]
     Active Substance: PROPOFOL
     Indication: STATUS EPILEPTICUS
     Dosage: 1%; DOSE WAS INCREASED
     Route: 041
  6. FLUVOXAMINE [Suspect]
     Active Substance: FLUVOXAMINE
     Indication: SUICIDE ATTEMPT
     Dosage: 435 TABLETS OF FLUVOXAMINE 50MG SINGLE DOSE
     Route: 065

REACTIONS (14)
  - Acute respiratory distress syndrome [Recovering/Resolving]
  - Intentional overdose [Recovering/Resolving]
  - Acute lung injury [Recovering/Resolving]
  - Circulatory collapse [Recovering/Resolving]
  - Toxicity to various agents [Recovering/Resolving]
  - Vomiting [Recovering/Resolving]
  - Mydriasis [Recovering/Resolving]
  - Aspiration [Recovering/Resolving]
  - Suicide attempt [Recovering/Resolving]
  - Coma [Recovering/Resolving]
  - Cardiac arrest [Recovering/Resolving]
  - Status epilepticus [Recovering/Resolving]
  - Hypotension [Recovering/Resolving]
  - Acidosis [Recovering/Resolving]
